FAERS Safety Report 22143310 (Version 1)
Quarter: 2023Q1

REPORT INFORMATION
  Report Type: Spontaneous
  Country: US (occurrence: None)
  Receive Date: 20230324
  Receipt Date: 20230324
  Transmission Date: 20230417
  Serious: Yes (Other)
  Sender: FDA-Public Use
  Company Number: None

PATIENT
  Age: 71 Year
  Sex: Male

DRUGS (1)
  1. LENALIDOMIDE [Suspect]
     Active Substance: LENALIDOMIDE
     Indication: Plasma cell myeloma
     Dosage: 10MG QD ORAL
     Route: 048
     Dates: start: 20210608

REACTIONS (5)
  - Product substitution issue [None]
  - Muscle spasms [None]
  - Bone pain [None]
  - Back pain [None]
  - Hot flush [None]

NARRATIVE: CASE EVENT DATE: 20230324
